FAERS Safety Report 5997744-7 (Version None)
Quarter: 2008Q4

REPORT INFORMATION
  Report Type: 
  Country: None (occurrence: None)
  Receive Date: 20081212
  Receipt Date: 20081119
  Transmission Date: 20090506
  Serious: No
  Sender: FDA-Public Use
  Company Number: US-ABBOTT-08P-163-0488988-00

PATIENT
  Sex: Female
  Weight: 67.646 kg

DRUGS (15)
  1. HUMIRA [Suspect]
     Indication: CROHN'S DISEASE
     Dates: start: 20081014
  2. HUMIRA [Suspect]
     Route: 058
     Dates: start: 20081015, end: 20081015
  3. HUMIRA [Suspect]
     Route: 058
     Dates: start: 20081029, end: 20081029
  4. HUMIRA [Suspect]
     Route: 058
     Dates: start: 20081112
  5. MESALAMINE [Concomitant]
     Indication: CROHN'S DISEASE
     Dosage: 6 - 400 MILLIGRAM TABS BID
  6. IMURAN [Concomitant]
     Indication: CROHN'S DISEASE
  7. PROCTO FOAM [Concomitant]
     Indication: CROHN'S DISEASE
     Route: 054
  8. MESALAMINE [Concomitant]
  9. IMODIUM [Concomitant]
     Indication: CROHN'S DISEASE
  10. LANSOPRAZOLE [Concomitant]
     Indication: GASTROOESOPHAGEAL REFLUX DISEASE
  11. LEKOVIT CA [Concomitant]
     Indication: CROHN'S DISEASE
  12. MULTI-VITAMIN [Concomitant]
     Indication: DRUG USE FOR UNKNOWN INDICATION
  13. FOLIC ACID [Concomitant]
     Indication: CROHN'S DISEASE
  14. BENZONATA [Concomitant]
     Indication: COUGH
     Dosage: 2 CAPSULES EVERY HOURS
  15. HYDROCHLOROTHIAZIDE [Concomitant]
     Indication: HYPERTENSION

REACTIONS (11)
  - ABDOMINAL PAIN [None]
  - BACK PAIN [None]
  - BODY TEMPERATURE INCREASED [None]
  - DIZZINESS [None]
  - HAEMATOCHEZIA [None]
  - HEADACHE [None]
  - MUCOUS STOOLS [None]
  - PALLOR [None]
  - PROCTALGIA [None]
  - TREMOR [None]
  - VOMITING [None]
